FAERS Safety Report 23693480 (Version 1)
Quarter: 2024Q2

REPORT INFORMATION
  Report Type: Spontaneous
  Country: ZA (occurrence: None)
  Receive Date: 20240401
  Receipt Date: 20240401
  Transmission Date: 20240716
  Serious: Yes (Death)
  Sender: FDA-Public Use
  Company Number: 2024A075836

PATIENT
  Age: 89 Year
  Sex: Female

DRUGS (4)
  1. DAPAGLIFLOZIN [Suspect]
     Active Substance: DAPAGLIFLOZIN
     Indication: Diabetes mellitus
     Route: 048
  2. SPIRACTIN [Concomitant]
     Indication: Hypertension
     Route: 048
  3. RIVAROXABAN [Concomitant]
     Active Substance: RIVAROXABAN
     Indication: Anticoagulant therapy
     Route: 048
  4. LIPOGEN [Concomitant]
     Indication: Blood cholesterol
     Route: 048

REACTIONS (1)
  - Death [Fatal]
